FAERS Safety Report 5964968-4 (Version None)
Quarter: 2008Q4

REPORT INFORMATION
  Report Type: 
  Country: None (occurrence: None)
  Receive Date: 20081125
  Receipt Date: 20081113
  Transmission Date: 20090506
  Serious: Yes (Hospitalization)
  Sender: FDA-Public Use
  Company Number: PHHY2008DE23109

PATIENT
  Sex: Male

DRUGS (2)
  1. ZOMETA [Suspect]
     Indication: METASTASES TO BONE
     Dosage: 4MG/5ML
     Route: 042
     Dates: start: 20070417, end: 20081006
  2. ZOMETA [Suspect]
     Indication: PROSTATE CANCER

REACTIONS (11)
  - ASTHENIA [None]
  - DRY SKIN [None]
  - IMPAIRED HEALING [None]
  - JAW DISORDER [None]
  - LISTLESS [None]
  - MUSCLE ATROPHY [None]
  - MUSCLE SPASMS [None]
  - MYALGIA [None]
  - NAUSEA [None]
  - PRURITUS [None]
  - TOOTH DISORDER [None]
